FAERS Safety Report 9916535 (Version 1)
Quarter: 2014Q1

REPORT INFORMATION
  Report Type: Spontaneous
  Country: IN (occurrence: None)
  Receive Date: 20140219
  Receipt Date: 20140219
  Transmission Date: 20141002
  Serious: Yes (Other)
  Sender: FDA-Public Use
  Company Number: INT_00364_2014

PATIENT
  Age: 55 Year
  Sex: Female

DRUGS (3)
  1. PACLITAXEL [Suspect]
     Indication: CERVIX CARCINOMA
     Dosage: DF [RECEIVED 2 CYCLES]
  2. PACLITAXEL [Suspect]
     Indication: OFF LABEL USE
     Dosage: DF [RECEIVED 2 CYCLES]
  3. CARBOPLATIN [Concomitant]

REACTIONS (2)
  - Normochromic normocytic anaemia [None]
  - Systemic lupus erythematosus [None]
